FAERS Safety Report 4724900-8 (Version None)
Quarter: 2005Q3

REPORT INFORMATION
  Report Type: 
  Country: None (occurrence: None)
  Receive Date: 20050726
  Receipt Date: 20050714
  Transmission Date: 20060218
  Serious: Yes (Hospitalization)
  Sender: FDA-Public Use
  Company Number: JP-SANOFI-SYNTHELABO-D01200505088

PATIENT
  Sex: Male
  Weight: 91 kg

DRUGS (2)
  1. SL770499 [Suspect]
     Indication: BENIGN PROSTATIC HYPERPLASIA
     Route: 048
     Dates: start: 20050407, end: 20050629
  2. ACECOL [Concomitant]
     Indication: HYPERTENSION
     Dosage: 2 MG
     Route: 048
     Dates: start: 20030401, end: 20050713

REACTIONS (1)
  - HEPATITIS [None]
